FAERS Safety Report 13013148 (Version 1)
Quarter: 2016Q4

REPORT INFORMATION
  Report Type: Spontaneous
  Country: US (occurrence: US)
  Receive Date: 20161208
  Receipt Date: 20161208
  Transmission Date: 20170207
  Serious: No
  Sender: FDA-Public Use
  Company Number: None

PATIENT
  Age: 69 Year
  Sex: Male
  Weight: 90.9 kg

DRUGS (13)
  1. VELCADE [Suspect]
     Active Substance: BORTEZOMIB
     Dates: end: 20161117
  2. ASPIRIN. [Concomitant]
     Active Substance: ASPIRIN
  3. CHOLESTYRAMINE-SUCROSE [Concomitant]
  4. POTASSIUM CHLORIDE. [Concomitant]
     Active Substance: POTASSIUM CHLORIDE
  5. SIMVASTATIN. [Concomitant]
     Active Substance: SIMVASTATIN
  6. ACETAMINOPHEN. [Concomitant]
     Active Substance: ACETAMINOPHEN
  7. LOPERAMIDE [Concomitant]
     Active Substance: LOPERAMIDE
  8. FOSINOPRIL [Concomitant]
     Active Substance: FOSINOPRIL
  9. MULTIVITAMIN [Concomitant]
     Active Substance: VITAMINS
  10. LENALIDOMIDE (CC-5013) [Suspect]
     Active Substance: LENALIDOMIDE
     Dates: end: 20161120
  11. LEVOTHYROXINE. [Concomitant]
     Active Substance: LEVOTHYROXINE
  12. METOPROLOL SUCCINATE. [Concomitant]
     Active Substance: METOPROLOL SUCCINATE
  13. DEXAMETHASONE. [Suspect]
     Active Substance: DEXAMETHASONE
     Dates: end: 20161118

REACTIONS (5)
  - Neuropathy peripheral [None]
  - Asthenia [None]
  - Quality of life decreased [None]
  - Activities of daily living impaired [None]
  - Fatigue [None]

NARRATIVE: CASE EVENT DATE: 20161128
